FAERS Safety Report 5538131-5 (Version None)
Quarter: 2007Q4

REPORT INFORMATION
  Report Type: 
  Country: None (occurrence: None)
  Receive Date: 20071207
  Receipt Date: 20071127
  Transmission Date: 20080405
  Serious: Yes (Other)
  Sender: FDA-Public Use
  Company Number: US-PFIZER INC-2007101301

PATIENT
  Sex: Female

DRUGS (1)
  1. CHANTIX [Suspect]

REACTIONS (4)
  - DISTURBANCE IN ATTENTION [None]
  - DYSGEUSIA [None]
  - PARANOIA [None]
  - SINUS HEADACHE [None]
